FAERS Safety Report 14723609 (Version 2)
Quarter: 2022Q4

REPORT INFORMATION
  Report Type: Report from Study
  Country: DE (occurrence: DE)
  Receive Date: 20180405
  Receipt Date: 20221206
  Transmission Date: 20230112
  Serious: Yes (Hospitalization, Other)
  Sender: FDA-Public Use
  Company Number: None

PATIENT
  Age: 34 Month
  Sex: Male
  Weight: 12.2 kg

DRUGS (56)
  1. CYTARABINE [Suspect]
     Active Substance: CYTARABINE
     Indication: Philadelphia chromosome positive
     Dosage: 42 MG, UNK
     Route: 042
  2. CYTARABINE [Suspect]
     Active Substance: CYTARABINE
     Indication: Acute lymphocytic leukaemia
     Dosage: DAILY DOSE: 41 MG MILLIGRAM(S) EVERY DAY
     Route: 042
     Dates: start: 20151019, end: 20151222
  3. CYTARABINE [Suspect]
     Active Substance: CYTARABINE
     Dosage: DAILY DOSE: 41 MG MILLIGRAM(S) EVERY DAY
     Route: 042
     Dates: start: 20151026, end: 20151029
  4. CYTARABINE [Suspect]
     Active Substance: CYTARABINE
     Dosage: DAILY DOSE: 41 MG MILLIGRAM(S) EVERY DAY
     Route: 042
     Dates: start: 20151102, end: 20151105
  5. CYTARABINE [Suspect]
     Active Substance: CYTARABINE
     Dosage: DAILY DOSE: 41 MG MILLIGRAM(S) EVERY DAY
     Route: 042
     Dates: start: 20151109, end: 20151112
  6. CYTARABINE [Suspect]
     Active Substance: CYTARABINE
     Dosage: DAILY DOSE: 2160 MG MILLIGRAM(S) EVERY DAY
     Route: 042
     Dates: start: 20151221
  7. CYTARABINE [Suspect]
     Active Substance: CYTARABINE
     Dosage: 1040 MG, UNK (4 APPLICATIONS TO 1040 MG)
     Route: 042
     Dates: start: 20160204, end: 20160206
  8. CYTARABINE [Suspect]
     Active Substance: CYTARABINE
     Dosage: UNK
     Route: 065
     Dates: end: 20160811
  9. METHOTREXATE [Suspect]
     Active Substance: METHOTREXATE
     Indication: Philadelphia chromosome positive
     Dosage: DAILY DOSE: 2700 MG MILLIGRAM(S) EVERY DAY
     Route: 042
     Dates: start: 20151218, end: 20151219
  10. METHOTREXATE [Suspect]
     Active Substance: METHOTREXATE
     Indication: Acute lymphocytic leukaemia
     Dosage: DAILY DOSE: 2600 MILLIGRAM(S) EVERY DAY
     Route: 042
     Dates: start: 20160114, end: 20160115
  11. METHOTREXATE [Suspect]
     Active Substance: METHOTREXATE
     Dosage: UNK
     Route: 048
     Dates: start: 20160913
  12. METHOTREXATE [Suspect]
     Active Substance: METHOTREXATE
     Dosage: REGULARY APPLICATION VIA THERAPY ELEMENT HR3
     Route: 037
     Dates: start: 20160208
  13. GLIVEC [Suspect]
     Active Substance: IMATINIB MESYLATE
     Indication: Philadelphia chromosome positive
     Dosage: DAILY DOSE: 150 MILLIGRAM(S) EVERY DAY
     Route: 048
     Dates: start: 20150921, end: 20170307
  14. GLIVEC [Suspect]
     Active Substance: IMATINIB MESYLATE
     Indication: Acute lymphocytic leukaemia
  15. GLIVEC [Suspect]
     Active Substance: IMATINIB MESYLATE
     Indication: Systemic scleroderma
  16. ASPARAGINASE [Suspect]
     Active Substance: ASPARAGINASE
     Indication: Acute lymphocytic leukaemia
     Dosage: 5400 IU, UNK
     Route: 042
  17. ASPARAGINASE [Suspect]
     Active Substance: ASPARAGINASE
     Indication: Philadelphia chromosome positive
     Dosage: DAILY DOSE: 13500 INTERNATIONAL UNIT(S) EVERY DAY
     Route: 042
     Dates: start: 20151223, end: 20151223
  18. ASPARAGINASE [Suspect]
     Active Substance: ASPARAGINASE
     Dosage: DAILY DOSE: 13000 INTERNATIONAL UNIT(S) EVERY DAY
     Route: 042
     Dates: start: 20160209, end: 20160209
  19. ASPARAGINASE [Suspect]
     Active Substance: ASPARAGINASE
     Dosage: DAILY DOSE: 1300 INTERNATIONAL UNIT(S) EVERY DAY
     Route: 042
     Dates: start: 20160303
  20. ASPARAGINASE [Suspect]
     Active Substance: ASPARAGINASE
     Dosage: 5400 IU, UNK
     Route: 042
     Dates: start: 20160313
  21. ASPARAGINASE [Suspect]
     Active Substance: ASPARAGINASE
     Dosage: 5400 IU, UNK
     Route: 042
     Dates: start: 20160627
  22. ASPARAGINASE [Suspect]
     Active Substance: ASPARAGINASE
     Dosage: 5400 IU, UNK
     Route: 042
     Dates: start: 20160630
  23. ASPARAGINASE [Suspect]
     Active Substance: ASPARAGINASE
     Dosage: 5400 IU, UNK
     Route: 042
     Dates: start: 20160306
  24. ASPARAGINASE [Suspect]
     Active Substance: ASPARAGINASE
     Dosage: 5400 IU, UNK
     Route: 042
     Dates: start: 20160310
  25. ASPARAGINASE [Suspect]
     Active Substance: ASPARAGINASE
     Dosage: 5400 IU, UNK
     Route: 042
     Dates: start: 20160620
  26. DOXORUBICIN [Suspect]
     Active Substance: DOXORUBICIN
     Indication: Acute lymphocytic leukaemia
     Dosage: 13.5 MG, UNK
     Route: 042
  27. DOXORUBICIN [Suspect]
     Active Substance: DOXORUBICIN
     Indication: Philadelphia chromosome positive
     Dosage: 13.5 MG, UNK
     Route: 042
     Dates: start: 20160620
  28. DOXORUBICIN [Suspect]
     Active Substance: DOXORUBICIN
     Dosage: 13.5 MG, UNK
     Route: 042
     Dates: start: 20160324
  29. DOXORUBICIN [Suspect]
     Active Substance: DOXORUBICIN
     Dosage: 13.5 MG, UNK
     Route: 042
     Dates: start: 20160627
  30. DOXORUBICIN [Suspect]
     Active Substance: DOXORUBICIN
     Dosage: 13.5 MG, UNK
     Route: 042
     Dates: start: 20160303
  31. DOXORUBICIN [Suspect]
     Active Substance: DOXORUBICIN
     Dosage: 13.5 MG, UNK
     Route: 042
     Dates: start: 20160704
  32. DOXORUBICIN [Suspect]
     Active Substance: DOXORUBICIN
     Dosage: 13.5 MG, UNK
     Route: 042
     Dates: start: 20160712
  33. DOXORUBICIN [Suspect]
     Active Substance: DOXORUBICIN
     Dosage: 13.5 MG, UNK
     Route: 042
     Dates: start: 20160310
  34. VINCRISTINE [Suspect]
     Active Substance: VINCRISTINE
     Indication: Acute lymphocytic leukaemia
     Dosage: 1.6 MG, UNK
     Route: 042
  35. VINCRISTINE [Suspect]
     Active Substance: VINCRISTINE
     Indication: Philadelphia chromosome positive
     Dosage: DAILY DOSE: 0.8 MG MILLIGRAM(S) EVERY
     Route: 042
     Dates: start: 20151218
  36. VINCRISTINE [Suspect]
     Active Substance: VINCRISTINE
     Dosage: DAILY DOSE: 0.8 MG MILLIGRAM(S) EVERY
     Route: 042
     Dates: start: 20151223, end: 20151223
  37. VINCRISTINE [Suspect]
     Active Substance: VINCRISTINE
     Dosage: 1.6 MG, UNK
     Route: 042
     Dates: start: 20160119, end: 20160119
  38. VINCRISTINE [Suspect]
     Active Substance: VINCRISTINE
     Dosage: DAILY DOSE: 0.8 MG MILLIGRAM(S) EVERY
     Route: 042
     Dates: start: 20160303, end: 20160303
  39. VINCRISTINE [Suspect]
     Active Substance: VINCRISTINE
     Dosage: DAILY DOSE: 0.8 MG MILLIGRAM(S) EVERY
     Route: 042
     Dates: start: 20160310
  40. VINCRISTINE [Suspect]
     Active Substance: VINCRISTINE
     Dosage: DAILY DOSE: 0.8 MG MILLIGRAM(S) EVERY
     Route: 042
     Dates: start: 20160317
  41. VINCRISTINE [Suspect]
     Active Substance: VINCRISTINE
     Dosage: DAILY DOSE: 0.8 MG MILLIGRAM(S) EVERY
     Route: 042
     Dates: start: 20160324
  42. VINCRISTINE [Suspect]
     Active Substance: VINCRISTINE
     Dosage: DAILY DOSE: 0.8 MG MILLIGRAM(S) EVERY
     Route: 042
     Dates: start: 20160620
  43. VINCRISTINE [Suspect]
     Active Substance: VINCRISTINE
     Dosage: DAILY DOSE: 0.8 MG MILLIGRAM(S) EVERY
     Route: 042
     Dates: start: 20160627
  44. VINCRISTINE [Suspect]
     Active Substance: VINCRISTINE
     Dosage: DAILY DOSE: 0.8 MG MILLIGRAM(S) EVERY
     Route: 042
     Dates: start: 20160704
  45. VINCRISTINE [Suspect]
     Active Substance: VINCRISTINE
     Dosage: DAILY DOSE: 0.8 MG MILLIGRAM(S) EVERY
     Route: 042
     Dates: start: 20160712
  46. ETOPOSIDE [Suspect]
     Active Substance: ETOPOSIDE
     Indication: Acute lymphocytic leukaemia
     Dosage: 52 MG, UNK (5 APPLICATIONS TO 52 MG
     Route: 042
     Dates: start: 20160206, end: 20160208
  47. ETOPOSIDE [Suspect]
     Active Substance: ETOPOSIDE
     Indication: Philadelphia chromosome positive
  48. CYCLOPHOSPHAMIDE [Suspect]
     Active Substance: CYCLOPHOSPHAMIDE
     Indication: Acute lymphocytic leukaemia
     Dosage: DAILY DOSE: 550 MILLIGRAM(S) EVERY DAY
     Route: 042
     Dates: start: 20151017, end: 20151017
  49. CYCLOPHOSPHAMIDE [Suspect]
     Active Substance: CYCLOPHOSPHAMIDE
     Indication: Philadelphia chromosome positive
     Dosage: DAILY DOSE: 550 MG MILLIGRAM(S) EVERY DAY
     Route: 042
     Dates: start: 20151203, end: 20151203
  50. CYCLOPHOSPHAMIDE [Suspect]
     Active Substance: CYCLOPHOSPHAMIDE
     Dosage: 110 MG, UNK (5 APPLICATIONS TO 110 MG)
     Route: 042
     Dates: start: 20151219, end: 20151221
  51. CYCLOPHOSPHAMIDE [Suspect]
     Active Substance: CYCLOPHOSPHAMIDE
     Dosage: 560 MG, UNK
     Route: 042
     Dates: start: 20160416, end: 20160416
  52. CYCLOPHOSPHAMIDE [Suspect]
     Active Substance: CYCLOPHOSPHAMIDE
     Dosage: 570 MG, UNK
     Route: 042
     Dates: start: 20160730, end: 20160730
  53. DAUNORUBICIN [Suspect]
     Active Substance: DAUNORUBICIN
     Indication: Acute lymphocytic leukaemia
     Dosage: DAILY DOSE: 16 MG MILLIGRAM(S) EVERY DAY
     Route: 042
     Dates: start: 20160118
  54. DAUNORUBICIN [Suspect]
     Active Substance: DAUNORUBICIN
     Indication: Philadelphia chromosome positive
  55. IFOSFAMIDE [Suspect]
     Active Substance: IFOSFAMIDE
     Indication: Acute lymphocytic leukaemia
     Dosage: DAILY DOSE: 416 MILLIGRAM(S) EVERY DAY
     Route: 042
     Dates: start: 20160115, end: 20160117
  56. IFOSFAMIDE [Suspect]
     Active Substance: IFOSFAMIDE
     Indication: Philadelphia chromosome positive

REACTIONS (12)
  - Hypoxia [Recovered/Resolved]
  - Constipation [Unknown]
  - Febrile neutropenia [Recovered/Resolved]
  - Neutropenia [Recovered/Resolved]
  - Pyrexia [Recovered/Resolved]
  - Upper respiratory tract infection [Recovered/Resolved]
  - Lymphopenia [Unknown]
  - Muscular weakness [Unknown]
  - Pruritus [Unknown]
  - Stomatitis [Unknown]
  - Urinary tract infection [Unknown]
  - Large intestine infection [Unknown]

NARRATIVE: CASE EVENT DATE: 20151110
